FAERS Safety Report 9517433 (Version 2)
Quarter: 2014Q2

REPORT INFORMATION
  Report Type: Spontaneous
  Country: SE (occurrence: SE)
  Receive Date: 20130911
  Receipt Date: 20140516
  Transmission Date: 20141212
  Serious: Yes (Other)
  Sender: FDA-Public Use
  Company Number: SE-WATSON-2013-16187

PATIENT
  Age: 74 Year
  Sex: Male

DRUGS (10)
  1. OMEPRAZOLE (UNKNOWN) [Suspect]
     Indication: PRODUCT USED FOR UNKNOWN INDICATION
     Dosage: 80 MG, DAILY
     Route: 048
     Dates: start: 20130504, end: 20130505
  2. PIPERACILLIN-TAZOBACTAM [Suspect]
     Indication: PRODUCT USED FOR UNKNOWN INDICATION
     Dosage: 6 MG, DAILY
     Route: 042
     Dates: start: 20130501, end: 20130503
  3. NEXIUM                             /01479302/ [Suspect]
     Indication: PRODUCT USED FOR UNKNOWN INDICATION
     Dosage: 192 MG, DAILY
     Route: 042
     Dates: start: 20130501, end: 20130503
  4. SANDOSTATIN [Concomitant]
     Indication: PRODUCT USED FOR UNKNOWN INDICATION
     Dosage: 192 MG, DAILY
     Route: 042
     Dates: start: 20130501, end: 20130503
  5. CONFIDEX [Concomitant]
     Indication: PRODUCT USED FOR UNKNOWN INDICATION
  6. CYKLOKAPRON [Concomitant]
     Indication: PRODUCT USED FOR UNKNOWN INDICATION
  7. KONAKION [Concomitant]
     Indication: PRODUCT USED FOR UNKNOWN INDICATION
  8. OCTOSTIM [Concomitant]
     Indication: PRODUCT USED FOR UNKNOWN INDICATION
  9. GLYPRESSINE [Concomitant]
     Indication: PRODUCT USED FOR UNKNOWN INDICATION
  10. SELOKENZOC [Concomitant]
     Indication: PRODUCT USED FOR UNKNOWN INDICATION

REACTIONS (2)
  - Thrombocytopenia [Not Recovered/Not Resolved]
  - Leukopenia [Not Recovered/Not Resolved]
